FAERS Safety Report 5830637-4 (Version None)
Quarter: 2008Q3

REPORT INFORMATION
  Report Type: 
  Country: None (occurrence: None)
  Receive Date: 20080801
  Receipt Date: 20070831
  Transmission Date: 20090109
  Serious: Yes (Death)
  Sender: FDA-Public Use
  Company Number: US-BRISTOL-MYERS SQUIBB COMPANY-13894845

PATIENT
  Sex: Female
  Weight: 73 kg

DRUGS (11)
  1. COUMADIN [Suspect]
     Indication: ATRIAL FIBRILLATION
     Route: 048
     Dates: start: 20061110
  2. DIGOXIN TAB [Concomitant]
     Route: 048
  3. BUMEX [Concomitant]
     Route: 048
  4. MICRO-K [Concomitant]
     Route: 048
  5. GLIPIZIDE [Concomitant]
     Route: 048
  6. ASPIRIN [Concomitant]
     Route: 048
  7. LIPITOR [Concomitant]
     Route: 048
  8. LISINOPRIL [Concomitant]
     Route: 048
  9. METOPROLOL [Concomitant]
     Route: 048
  10. SYNTHROID [Concomitant]
     Route: 048
  11. NITROGLYCERIN SL [Concomitant]

REACTIONS (1)
  - DEATH [None]
